FAERS Safety Report 7167882-4 (Version None)
Quarter: 2010Q4

REPORT INFORMATION
  Report Type: 
  Country: None (occurrence: None)
  Receive Date: 20101216
  Receipt Date: 20101209
  Transmission Date: 20110411
  Serious: Yes (Hospitalization)
  Sender: FDA-Public Use
  Company Number: US-ELI_LILLY_AND_COMPANY-US201012003194

PATIENT
  Age: 65 Year
  Sex: Female
  Weight: 126.8 kg

DRUGS (19)
  1. BYETTA [Suspect]
     Indication: TYPE 2 DIABETES MELLITUS
     Dosage: 5 UG, 2/D
     Route: 065
  2. BYETTA [Suspect]
     Dosage: 10 UG, 2/D
     Route: 058
  3. BYETTA [Suspect]
     Dosage: 10 UG, 2/D
     Route: 058
     Dates: start: 20101209
  4. VICTOZA [Concomitant]
     Indication: TYPE 2 DIABETES MELLITUS
     Dosage: 0.6 UG, DAILY (1/D)
     Route: 058
  5. VICTOZA [Concomitant]
     Dosage: 1.2 UG, DAILY (1/D)
     Route: 058
  6. VICTOZA [Concomitant]
     Dosage: 1.8 UG, DAILY (1/D)
     Route: 058
     Dates: end: 20101208
  7. LISINOPRIL [Concomitant]
     Dosage: 20 MG, DAILY (1/D)
     Route: 048
  8. SYNTHROID [Concomitant]
     Dosage: 50 UG, DAILY (1/D)
  9. CALCIUM 600 + D [Concomitant]
     Dosage: UNK, DAILY (1/D)
     Route: 048
  10. MULTI-VITAMIN [Concomitant]
     Dosage: UNK, DAILY (1/D)
     Route: 048
  11. METOPROLOL TARTRATE [Concomitant]
     Dosage: 25 MG, DAILY (1/D)
     Route: 048
     Dates: start: 20090201
  12. FUROSEMIDE [Concomitant]
     Dosage: 40 MG, DAILY (1/D)
     Route: 048
     Dates: start: 20090201
  13. LEXAPRO [Concomitant]
     Dosage: 20 MG, DAILY (1/D)
     Dates: start: 20090201
  14. LEXAPRO [Concomitant]
     Dosage: 10 MG, UNK
  15. KLOR-CON M20 [Concomitant]
     Dosage: 1 TABLET DAILY
     Route: 048
     Dates: start: 20090201
  16. ASPIRIN [Concomitant]
     Dosage: 81 MG, DAILY (1/D)
     Route: 048
     Dates: start: 20090201
  17. COLACE [Concomitant]
     Dosage: 1 PILL ALMOST EVERY DAY
  18. OMEPRAZOLE [Concomitant]
     Indication: GASTROOESOPHAGEAL REFLUX DISEASE
     Dosage: 20.6 MG, UNK
  19. CLINDAMYCIN [Concomitant]

REACTIONS (19)
  - ANAEMIA [None]
  - AORTIC VALVE DISEASE [None]
  - CATARACT OPERATION [None]
  - CONSTIPATION [None]
  - DYSPHAGIA [None]
  - DYSPNOEA [None]
  - ENDODONTIC PROCEDURE [None]
  - FATIGUE [None]
  - GASTROOESOPHAGEAL REFLUX DISEASE [None]
  - HIATUS HERNIA [None]
  - INJECTION SITE PAIN [None]
  - MYOCARDIAL INFARCTION [None]
  - NAUSEA [None]
  - OXYGEN CONSUMPTION [None]
  - SLEEP APNOEA SYNDROME [None]
  - SYNCOPE [None]
  - VISUAL IMPAIRMENT [None]
  - VOMITING [None]
  - WRONG TECHNIQUE IN DRUG USAGE PROCESS [None]
